FAERS Safety Report 10020894 (Version 1)
Quarter: 2014Q1

REPORT INFORMATION
  Report Type: Spontaneous
  Country: US (occurrence: US)
  Receive Date: 20140319
  Receipt Date: 20140319
  Transmission Date: 20141002
  Serious: Yes (Hospitalization)
  Sender: FDA-Public Use
  Company Number: US-JNJFOC-20140307489

PATIENT
  Age: 28 Year
  Sex: Male

DRUGS (7)
  1. INVEGA SUSTENNA [Suspect]
     Indication: SCHIZOPHRENIA
     Route: 030
     Dates: start: 2013
  2. HALDOL [Concomitant]
     Route: 048
  3. PROPANOL [Concomitant]
     Route: 065
  4. VISTARIL [Concomitant]
     Route: 065
  5. PROZAC [Concomitant]
     Dosage: 30 MG
     Route: 065
  6. PRISTIQ [Concomitant]
     Route: 065
  7. COGENTIN [Concomitant]
     Route: 065

REACTIONS (2)
  - Suicide attempt [Unknown]
  - Thinking abnormal [Unknown]
